FAERS Safety Report 23790438 (Version 1)
Quarter: 2024Q2

REPORT INFORMATION
  Report Type: Spontaneous
  Country: NL (occurrence: NL)
  Receive Date: 20240427
  Receipt Date: 20240427
  Transmission Date: 20240716
  Serious: Yes (Other)
  Sender: FDA-Public Use
  Company Number: None

PATIENT
  Age: 61 Year
  Sex: Male
  Weight: 64 kg

DRUGS (3)
  1. AMLODIPINE [Suspect]
     Active Substance: AMLODIPINE BESYLATE
     Indication: Hypertension
     Dosage: 1DD1, BRAND NAME NOT SPECIFIED
     Route: 065
     Dates: start: 20170101
  2. DIOVAN [Suspect]
     Active Substance: VALSARTAN
     Indication: Hypertension
     Dosage: 1DD1, VALSARTAN TABLET COATED 80MG / DIOVAN TABLET COATED 80MG
     Route: 065
     Dates: start: 20140101
  3. ATORVASTATIN [Suspect]
     Active Substance: ATORVASTATIN
     Indication: Hypercholesterolaemia
     Dosage: 1DD1, BRAND NAME NOT SPECIFIED
     Route: 065
     Dates: start: 20190101

REACTIONS (2)
  - Muscle rupture [Not Recovered/Not Resolved]
  - Myalgia [Unknown]
